FAERS Safety Report 8997465 (Version 1)
Quarter: 2013Q1

REPORT INFORMATION
  Report Type: Spontaneous
  Country: US (occurrence: US)
  Receive Date: 20130104
  Receipt Date: 20130104
  Transmission Date: 20140127
  Serious: No
  Sender: FDA-Public Use
  Company Number: US-009507513-2012SP036433

PATIENT
  Age: 4 Year
  Sex: Male

DRUGS (4)
  1. CLARITIN ORAL SOLUTION [Suspect]
     Indication: NASAL CONGESTION
     Dosage: 5 MG, QD
     Route: 048
     Dates: start: 20120507, end: 20120523
  2. CLARITIN ORAL SOLUTION [Suspect]
     Indication: RHINORRHOEA
  3. ASCORBIC ACID [Concomitant]
     Indication: PRODUCT USED FOR UNKNOWN INDICATION
     Dosage: UNK, UNKNOWN
  4. ACIDOPHILUS [Concomitant]
     Indication: PRODUCT USED FOR UNKNOWN INDICATION
     Dosage: UNK, UNKNOWN

REACTIONS (2)
  - Respiratory tract congestion [Recovered/Resolved]
  - No therapeutic response [Unknown]
